FAERS Safety Report 5142596-0 (Version None)
Quarter: 2006Q4

REPORT INFORMATION
  Report Type: 
  Country: None (occurrence: None)
  Receive Date: 20061027
  Receipt Date: 20061012
  Transmission Date: 20070319
  Serious: Yes (Hospitalization)
  Sender: FDA-Public Use
  Company Number: 2006SP003702

PATIENT
  Age: 60 Year
  Sex: Male
  Weight: 90 kg

DRUGS (8)
  1. XOPENEX [Suspect]
     Indication: CHRONIC OBSTRUCTIVE PULMONARY DISEASE
     Dosage: 90 UG;PRN;INHALATION
     Route: 055
     Dates: start: 20060406, end: 20061004
  2. ATORVASTATIN CALCIUM [Concomitant]
  3. METOPROLOL TARTRATE [Concomitant]
  4. VALSARTAN [Concomitant]
  5. PANTOPRAZOLE SODIUM [Concomitant]
  6. INSULIN [Concomitant]
  7. ASPIRIN [Concomitant]
  8. FLONASE [Concomitant]

REACTIONS (4)
  - BODY TEMPERATURE INCREASED [None]
  - CHRONIC OBSTRUCTIVE PULMONARY DISEASE [None]
  - CONDITION AGGRAVATED [None]
  - LOSS OF CONSCIOUSNESS [None]
